FAERS Safety Report 20527668 (Version 1)
Quarter: 2022Q1

REPORT INFORMATION
  Report Type: Spontaneous
  Country: US (occurrence: US)
  Receive Date: 20220228
  Receipt Date: 20220228
  Transmission Date: 20220423
  Serious: No
  Sender: FDA-Public Use
  Company Number: US-PERRIGO-21US030713

PATIENT
  Age: 73 Year
  Sex: Female
  Weight: 68.027 kg

DRUGS (10)
  1. ESTRADIOL [Suspect]
     Active Substance: ESTRADIOL
     Indication: Vulvovaginal dryness
     Dosage: 2G, QHS
     Route: 067
     Dates: start: 20211024, end: 20211024
  2. ESTRADIOL [Suspect]
     Active Substance: ESTRADIOL
     Dosage: 1G, SINGLE AT BEDTIME
     Route: 067
     Dates: start: 20211104, end: 20211104
  3. LISINOPRIL [Concomitant]
     Active Substance: LISINOPRIL
     Indication: Blood pressure abnormal
     Dosage: UNK
     Route: 065
  4. ASPIRIN [Concomitant]
     Active Substance: ASPIRIN
     Indication: Anticoagulant therapy
     Dosage: UNK
     Route: 065
  5. VITAMINS NOS [Concomitant]
     Active Substance: VITAMINS
     Indication: Supplementation therapy
     Dosage: UNK
     Route: 065
  6. ACIPHEX [Concomitant]
     Active Substance: RABEPRAZOLE SODIUM
     Indication: Gastrooesophageal reflux disease
     Dosage: UNK
     Route: 065
  7. ACIPHEX [Concomitant]
     Active Substance: RABEPRAZOLE SODIUM
     Indication: Flatulence
  8. FIBERMUCIL [Concomitant]
     Indication: Bowel movement irregularity
     Dosage: UNK
     Route: 065
  9. COQ10 COMPLEX [Concomitant]
     Indication: Blood cholesterol increased
     Dosage: UNK
     Route: 065
  10. DIHYDROERGOCRISTINE\LOMIFYLLINE [Concomitant]
     Active Substance: DIHYDROERGOCRISTINE\LOMIFYLLINE
     Indication: Dizziness
     Dosage: UNK
     Route: 065

REACTIONS (3)
  - Breast pain [Not Recovered/Not Resolved]
  - Breast tenderness [Not Recovered/Not Resolved]
  - Vulvovaginal burning sensation [Not Recovered/Not Resolved]

NARRATIVE: CASE EVENT DATE: 20211001
